FAERS Safety Report 4680541-2 (Version None)
Quarter: 2005Q2

REPORT INFORMATION
  Report Type: 
  Country: None (occurrence: None)
  Receive Date: 20050601
  Receipt Date: 20050513
  Transmission Date: 20051028
  Serious: Yes (Hospitalization)
  Sender: FDA-Public Use
  Company Number: FR_050506409

PATIENT
  Age: 73 Year
  Sex: Male

DRUGS (6)
  1. GEMZAR [Suspect]
     Indication: LUNG ADENOCARCINOMA
     Dates: start: 20050218, end: 20050218
  2. CARBOPLATINE TEVA (CARBOPLATIN SANOFI-SYNTHELABO) [Concomitant]
  3. PREDNISOLONE [Concomitant]
  4. MORPHINE SULFATE [Concomitant]
  5. ONDANSETRON HYDROCHLORIDE [Concomitant]
  6. EFFERALGAN CODEINE [Concomitant]

REACTIONS (1)
  - INTESTINAL OBSTRUCTION [None]
